FAERS Safety Report 4764860-7 (Version None)
Quarter: 2005Q3

REPORT INFORMATION
  Report Type: 
  Country: None (occurrence: None)
  Receive Date: 20050909
  Receipt Date: 20050502
  Transmission Date: 20060218
  Serious: Yes (Hospitalization)
  Sender: FDA-Public Use
  Company Number: PHHO2005DE07003

PATIENT
  Age: 65 Year
  Sex: Male
  Weight: 113 kg

DRUGS (2)
  1. NEORAL [Suspect]
     Indication: RENAL TRANSPLANT
     Route: 048
     Dates: start: 20040327, end: 20040914
  2. STEROIDS NOS [Concomitant]
     Indication: RENAL TRANSPLANT
     Dosage: 4 MG/DAY
     Route: 048
     Dates: start: 20040327

REACTIONS (4)
  - CARDIAC FAILURE [None]
  - CORONARY ARTERY ATHEROSCLEROSIS [None]
  - DISEASE PROGRESSION [None]
  - DYSPNOEA [None]
